FAERS Safety Report 12132959 (Version 1)
Quarter: 2016Q1

REPORT INFORMATION
  Report Type: Spontaneous
  Country: US (occurrence: None)
  Receive Date: 20160229
  Receipt Date: 20160229
  Transmission Date: 20160526
  Serious: Yes (Disabling)
  Sender: FDA-Public Use
  Company Number: None

PATIENT
  Age: 59 Year
  Sex: Female
  Weight: 90.72 kg

DRUGS (2)
  1. LETROZOLE 2.5 MG SUN PHARMACEUTICALS [Suspect]
     Active Substance: LETROZOLE
     Indication: HER-2 POSITIVE GASTRIC CANCER
     Dosage: 1 DAY
     Route: 048
     Dates: start: 20160214, end: 20160219
  2. LETROZOLE 2.5 MG SUN PHARMACEUTICALS [Suspect]
     Active Substance: LETROZOLE
     Indication: BREAST CANCER
     Dosage: 1 DAY
     Route: 048
     Dates: start: 20160214, end: 20160219

REACTIONS (3)
  - Dysstasia [None]
  - Pain in extremity [None]
  - Abasia [None]

NARRATIVE: CASE EVENT DATE: 20160212
